FAERS Safety Report 5364213-7 (Version None)
Quarter: 2007Q2

REPORT INFORMATION
  Report Type: 
  Country: None (occurrence: None)
  Receive Date: 20070620
  Receipt Date: 20070613
  Transmission Date: 20071010
  Serious: Yes (Hospitalization, Disabling)
  Sender: FDA-Public Use
  Company Number: US-BOEHRINGER INGELHEIM PHARMACEUTICALS, INC.-2007-BP-09642BP

PATIENT
  Age: 83 Year
  Sex: Male

DRUGS (4)
  1. FLOMAX [Suspect]
     Indication: BENIGN PROSTATIC HYPERPLASIA
     Route: 048
     Dates: start: 20040101
  2. DIOVAN [Concomitant]
  3. NAPROSYN [Concomitant]
  4. ACIPHEX [Concomitant]

REACTIONS (4)
  - BLINDNESS UNILATERAL [None]
  - CATARACT OPERATION [None]
  - CORNEAL OEDEMA [None]
  - CORNEAL OPERATION [None]
